FAERS Safety Report 6571639-2 (Version None)
Quarter: 2010Q1

REPORT INFORMATION
  Report Type: 
  Country: None (occurrence: None)
  Receive Date: 20100205
  Receipt Date: 20100125
  Transmission Date: 20100710
  Serious: Yes (Disabling)
  Sender: FDA-Public Use
  Company Number: PHFR2006GB03582

PATIENT
  Age: 14 Year
  Sex: Male

DRUGS (2)
  1. RITALIN [Suspect]
     Dosage: 60MG / DAY
     Route: 048
  2. RITALIN [Suspect]
     Dosage: DOSE REDUCED

REACTIONS (8)
  - BULBAR PALSY [None]
  - CEREBROVASCULAR ACCIDENT [None]
  - CHOKING [None]
  - DYSPHAGIA [None]
  - DYSPHONIA [None]
  - MUSCULOSKELETAL PAIN [None]
  - NECK PAIN [None]
  - REGURGITATION [None]
